FAERS Safety Report 7729929-3 (Version None)
Quarter: 2011Q3

REPORT INFORMATION
  Report Type: 
  Country: None (occurrence: None)
  Receive Date: 20110906
  Receipt Date: 20110823
  Transmission Date: 20111222
  Serious: Yes (Other)
  Sender: FDA-Public Use
  Company Number: PHHY2011BR76559

PATIENT
  Sex: Female

DRUGS (3)
  1. AMLODIPINE BESYLATE [Suspect]
  2. NORVASC [Suspect]
     Dosage: 5 MG, UNK
  3. DIOVAN HCT [Suspect]

REACTIONS (2)
  - ARTERIAL OCCLUSIVE DISEASE [None]
  - IRRITABILITY [None]
